FAERS Safety Report 7825872-X (Version None)
Quarter: 2011Q4

REPORT INFORMATION
  Report Type: 
  Country: None (occurrence: None)
  Receive Date: 20111019
  Receipt Date: 20111010
  Transmission Date: 20120403
  Serious: Yes (Other)
  Sender: FDA-Public Use
  Company Number: FR-ROCHE-1003632

PATIENT
  Age: 57 Year
  Sex: Female

DRUGS (4)
  1. LEUCOVORIN CALCIUM [Suspect]
     Indication: ADENOCARCINOMA
  2. IRINOTECAN HCL [Suspect]
     Indication: ADENOCARCINOMA
  3. BEVACIZUMAB [Suspect]
     Indication: ADENOCARCINOMA
  4. FLUOROURACIL [Suspect]
     Indication: ADENOCARCINOMA

REACTIONS (2)
  - NECROSIS [None]
  - DRUG ADMINISTRATION ERROR [None]
